FAERS Safety Report 7003764-6 (Version None)
Quarter: 2010Q3

REPORT INFORMATION
  Report Type: 
  Country: None (occurrence: None)
  Receive Date: 20100920
  Receipt Date: 20091130
  Transmission Date: 20110219
  Serious: No
  Sender: FDA-Public Use
  Company Number: US-WYE-H12392709

PATIENT
  Sex: Female
  Weight: 81.72 kg

DRUGS (4)
  1. PRISTIQ [Suspect]
     Indication: OBSESSIVE-COMPULSIVE DISORDER
     Route: 048
     Dates: start: 20090901
  2. PRISTIQ [Suspect]
     Dosage: 1AND 1/2 TABLETS DAILY
     Route: 048
     Dates: start: 20090101, end: 20091101
  3. PRISTIQ [Suspect]
     Route: 048
     Dates: start: 20091101
  4. ATENOLOL [Concomitant]
     Dosage: UNKNOWN

REACTIONS (8)
  - ANXIETY [None]
  - DECREASED APPETITE [None]
  - DRUG INEFFECTIVE FOR UNAPPROVED INDICATION [None]
  - HYPERHIDROSIS [None]
  - NAUSEA [None]
  - NIGHTMARE [None]
  - PALPITATIONS [None]
  - UNEVALUABLE EVENT [None]
